FAERS Safety Report 5219374-7 (Version None)
Quarter: 2007Q1

REPORT INFORMATION
  Report Type: 
  Country: None (occurrence: None)
  Receive Date: 20070125
  Receipt Date: 20070118
  Transmission Date: 20070707
  Serious: Yes (Death)
  Sender: FDA-Public Use
  Company Number: US-JNJFOC-20070104553

PATIENT
  Sex: Female

DRUGS (10)
  1. INFLIXIMAB [Suspect]
     Indication: RHEUMATOID ARTHRITIS
     Route: 042
  2. FOSAMAX [Concomitant]
  3. FOLIC ACID [Concomitant]
  4. NEURONTIN [Concomitant]
  5. PREDNISONE [Concomitant]
  6. PROPRANOLOL [Concomitant]
  7. TYLOX [Concomitant]
  8. VOLTAREN [Concomitant]
  9. METHOTREXATE [Concomitant]
  10. NEXIUM [Concomitant]

REACTIONS (1)
  - DIVERTICULITIS [None]
